FAERS Safety Report 12707478 (Version 1)
Quarter: 2016Q3

REPORT INFORMATION
  Report Type: Report from Study
  Country: PT (occurrence: PT)
  Receive Date: 20160901
  Receipt Date: 20160901
  Transmission Date: 20161109
  Serious: Yes (Hospitalization)
  Sender: FDA-Public Use
  Company Number: PHHY2016PT119631

PATIENT
  Age: 41 Year
  Sex: Female

DRUGS (1)
  1. GILENYA [Suspect]
     Active Substance: FINGOLIMOD HYDROCHLORIDE
     Indication: MULTIPLE SCLEROSIS
     Route: 048

REACTIONS (3)
  - Hypertonic bladder [Recovered/Resolved]
  - Reduced bladder capacity [Recovered/Resolved]
  - Detrusor sphincter dyssynergia [Recovered/Resolved]

NARRATIVE: CASE EVENT DATE: 20150902
